FAERS Safety Report 4789455-0 (Version None)
Quarter: 2005Q4

REPORT INFORMATION
  Report Type: 
  Country: None (occurrence: None)
  Receive Date: 20051004
  Receipt Date: 20051004
  Transmission Date: 20060501
  Serious: Yes (Life-Threatening, Hospitalization)
  Sender: FDA-Public Use
  Company Number: None

PATIENT
  Sex: Male

DRUGS (8)
  1. TACROLIMUS [Suspect]
     Indication: PROPHYLAXIS AGAINST TRANSPLANT REJECTION
     Dosage: 4 MG PO BID
     Route: 048
  2. MMF [Concomitant]
  3. PREDNISONE [Concomitant]
  4. MASOXIDE [Concomitant]
  5. GANCICLOVIR [Concomitant]
  6. M.V.I. [Concomitant]
  7. RANITIDINE [Concomitant]
  8. TRIMETHOPRIM/SULMETHEXAZOLE [Concomitant]

REACTIONS (2)
  - BLOOD POTASSIUM INCREASED [None]
  - DIARRHOEA [None]
